FAERS Safety Report 6443303-1 (Version None)
Quarter: 2009Q4

REPORT INFORMATION
  Report Type: 
  Country: None (occurrence: None)
  Receive Date: 20091117
  Receipt Date: 20091106
  Transmission Date: 20100525
  Serious: No
  Sender: FDA-Public Use
  Company Number: US-B.I. PHARMACEUTICALS,INC./RIDGEFIELD-2009-BP-13041BP

PATIENT
  Sex: Male

DRUGS (9)
  1. SPIRIVA [Suspect]
     Indication: CHRONIC OBSTRUCTIVE PULMONARY DISEASE
     Dosage: 18 MCG
     Route: 055
     Dates: start: 20091027
  2. OMEPRAZOLE [Concomitant]
     Indication: GASTROOESOPHAGEAL REFLUX DISEASE
  3. AMLODIPINE [Concomitant]
     Indication: AORTIC ANEURYSM
  4. DOXAZOSIN [Concomitant]
     Indication: AORTIC ANEURYSM
  5. CRESTOR [Concomitant]
     Indication: BLOOD CHOLESTEROL INCREASED
  6. VITAMIN D-3 [Concomitant]
     Indication: PROPHYLAXIS
  7. MULTI-VITAMIN [Concomitant]
     Indication: PROPHYLAXIS
     Route: 048
  8. WALGREENS MIRALAX [Concomitant]
     Indication: CONSTIPATION
  9. FISH OIL [Concomitant]
     Indication: PROPHYLAXIS

REACTIONS (4)
  - ABDOMINAL PAIN UPPER [None]
  - INFLUENZA [None]
  - PAIN [None]
  - RENAL PAIN [None]
